FAERS Safety Report 24184123 (Version 1)
Quarter: 2024Q3

REPORT INFORMATION
  Report Type: Spontaneous
  Country: US (occurrence: US)
  Receive Date: 20240807
  Receipt Date: 20240807
  Transmission Date: 20241016
  Serious: Yes (Death, Hospitalization, Other)
  Sender: BAXTER
  Company Number: US-BAXTER-2024BAX022489

PATIENT

DRUGS (1)
  1. SODIUM CHLORIDE [Suspect]
     Active Substance: SODIUM CHLORIDE
     Dosage: (MANUFACTURING DATE : 08-MAR-2024), 500 ML
     Route: 065

REACTIONS (3)
  - Death [Fatal]
  - Loss of consciousness [Unknown]
  - Unresponsive to stimuli [Unknown]

NARRATIVE: CASE EVENT DATE: 20240722
